FAERS Safety Report 4848467-9 (Version None)
Quarter: 2005Q4

REPORT INFORMATION
  Report Type: 
  Country: None (occurrence: None)
  Receive Date: 20051208
  Receipt Date: 20051005
  Transmission Date: 20060501
  Serious: Yes (Hospitalization)
  Sender: FDA-Public Use
  Company Number: US-MERCK-0510USA04229

PATIENT
  Age: 71 Year
  Sex: Female
  Weight: 105 kg

DRUGS (9)
  1. VIOXX [Suspect]
     Indication: PAIN
     Route: 048
     Dates: start: 20001017, end: 20031220
  2. VIOXX [Suspect]
     Indication: ARTHRITIS
     Route: 048
     Dates: start: 20001017, end: 20031220
  3. LASIX [Concomitant]
     Route: 065
  4. LOPERAMIDE HYDROCHLORIDE [Concomitant]
     Route: 065
  5. MICRONASE [Concomitant]
     Route: 065
  6. SYNTHROID [Concomitant]
     Route: 065
  7. ESTRACE [Concomitant]
     Route: 065
  8. ASPIRIN [Concomitant]
     Route: 065
  9. ZANTAC [Concomitant]
     Route: 065

REACTIONS (7)
  - ARTERIAL OCCLUSIVE DISEASE [None]
  - BRADYCARDIA [None]
  - CARDIOVASCULAR DISORDER [None]
  - CARPAL TUNNEL SYNDROME [None]
  - HYPOGLYCAEMIA [None]
  - NEPHROLITHIASIS [None]
  - PARATHYROID DISORDER [None]
